FAERS Safety Report 15374327 (Version 4)
Quarter: 2019Q3

REPORT INFORMATION
  Report Type: Spontaneous
  Country: JP (occurrence: JP)
  Receive Date: 20180912
  Receipt Date: 20190923
  Transmission Date: 20191004
  Serious: Yes (Hospitalization)
  Sender: FDA-Public Use
  Company Number: JP-JNJFOC-20180911229

PATIENT
  Age: 60 Year
  Sex: Male
  Weight: 81 kg

DRUGS (20)
  1. MAINTATE [Concomitant]
     Active Substance: BISOPROLOL FUMARATE
     Route: 048
     Dates: start: 20120705
  2. NOVORAPID [Concomitant]
     Active Substance: INSULIN ASPART
     Indication: TYPE 2 DIABETES MELLITUS
     Route: 051
     Dates: start: 20141225, end: 20160818
  3. U-PASTA [Concomitant]
     Indication: PYOGENIC GRANULOMA
     Route: 062
     Dates: start: 20180410, end: 20180508
  4. NEO-MINOPHAGEN C [Concomitant]
     Active Substance: AMMONIUM GLYCYRRHIZATE
     Route: 042
     Dates: start: 20180412, end: 20180417
  5. CANAGLIFLOZIN [Suspect]
     Active Substance: CANAGLIFLOZIN
     Indication: TYPE 2 DIABETES MELLITUS
     Route: 048
     Dates: start: 20160414
  6. TRESIBA [Concomitant]
     Active Substance: INSULIN DEGLUDEC
     Indication: TYPE 2 DIABETES MELLITUS
     Route: 051
     Dates: start: 20151001
  7. IRBESARTAN. [Concomitant]
     Active Substance: IRBESARTAN
     Dosage: ORAL DRUG UNSPECIFIED FORM?100 MILLIGRAM, QD
     Route: 048
     Dates: start: 20180615
  8. WHITE SOFT PARAFFIN [Concomitant]
     Active Substance: PARAFFIN
     Indication: XERODERMA
     Route: 062
     Dates: start: 20180410, end: 20180411
  9. UREPEARL [Concomitant]
     Active Substance: UREA
     Indication: XERODERMA
     Route: 062
     Dates: start: 20180412, end: 20180417
  10. LOCOID [Concomitant]
     Active Substance: HYDROCORTISONE BUTYRATE
     Indication: DERMATITIS CONTACT
     Route: 062
     Dates: start: 20180412, end: 20180417
  11. NOVORAPID [Concomitant]
     Active Substance: INSULIN ASPART
     Route: 051
     Dates: start: 20160819, end: 20160914
  12. EPINASTINE HYDROCHLORIDE. [Concomitant]
     Active Substance: EPINASTINE HYDROCHLORIDE
     Route: 048
     Dates: start: 20151029
  13. AIMIX [Concomitant]
     Active Substance: AMLODIPINE BESYLATE\IRBESARTAN
     Route: 048
     Dates: start: 20140417, end: 20180614
  14. AZELNIDIPINE [Concomitant]
     Active Substance: AZELNIDIPINE
     Route: 048
     Dates: start: 20180615
  15. CIBENOL [Concomitant]
     Active Substance: CIFENLINE
     Route: 048
     Dates: start: 20111222
  16. METFORMIN HYDROCHLORIDE. [Concomitant]
     Active Substance: METFORMIN HYDROCHLORIDE
     Indication: TYPE 2 DIABETES MELLITUS
     Route: 048
     Dates: start: 20131107
  17. CARBOCISTEINE [Concomitant]
     Active Substance: CARBOCYSTEINE
     Route: 048
     Dates: start: 20180416, end: 20180507
  18. NOVORAPID [Concomitant]
     Active Substance: INSULIN ASPART
     Route: 051
     Dates: start: 20160915
  19. FEXOFENADINE HYDROCHLORIDE. [Concomitant]
     Active Substance: FEXOFENADINE HYDROCHLORIDE
     Route: 048
     Dates: start: 20150319
  20. CLARITHROMYCIN. [Concomitant]
     Active Substance: CLARITHROMYCIN
     Route: 048
     Dates: start: 20180416, end: 20180507

REACTIONS (2)
  - Herpes zoster [Recovered/Resolved]
  - Diabetes mellitus inadequate control [Recovering/Resolving]

NARRATIVE: CASE EVENT DATE: 20171109
